FAERS Safety Report 18355252 (Version 2)
Quarter: 2020Q4

REPORT INFORMATION
  Report Type: Spontaneous
  Country: US (occurrence: US)
  Receive Date: 20201007
  Receipt Date: 20201102
  Transmission Date: 20210114
  Serious: No
  Sender: FDA-Public Use
  Company Number: US-FDC LIMITED-2092439

PATIENT
  Age: 18 Year
  Sex: Male
  Weight: 63.64 kg

DRUGS (1)
  1. CIPROFLOXACIN. [Suspect]
     Active Substance: CIPROFLOXACIN
     Indication: CONJUNCTIVITIS
     Route: 047
     Dates: start: 20200924

REACTIONS (3)
  - Foreign body sensation in eyes [Unknown]
  - Eye irritation [Unknown]
  - Eye pain [Unknown]

NARRATIVE: CASE EVENT DATE: 20200929
